FAERS Safety Report 10975562 (Version 1)
Quarter: 2015Q2

REPORT INFORMATION
  Report Type: Spontaneous
  Country: US (occurrence: US)
  Receive Date: 20150401
  Receipt Date: 20150401
  Transmission Date: 20150821
  Serious: No
  Sender: FDA-Public Use
  Company Number: US-GLAXOSMITHKLINE-US2015041069

PATIENT
  Age: 77 Year
  Sex: Male

DRUGS (1)
  1. KROGER NICOTINE [Suspect]
     Active Substance: NICOTINE
     Indication: SMOKING CESSATION THERAPY
     Dosage: 4 MG, UNK
     Dates: start: 20150301, end: 20150315

REACTIONS (1)
  - Constipation [Recovered/Resolved]
